FAERS Safety Report 12830234 (Version 1)
Quarter: 2016Q4

REPORT INFORMATION
  Report Type: Spontaneous
  Country: US (occurrence: US)
  Receive Date: 20161007
  Receipt Date: 20161007
  Transmission Date: 20170207
  Serious: Yes (Other)
  Sender: FDA-Public Use
  Company Number: US-SA-2016SA160246

PATIENT
  Sex: Male

DRUGS (2)
  1. AUBAGIO [Suspect]
     Active Substance: TERIFLUNOMIDE
     Route: 065
  2. ACYCLOVIR. [Suspect]
     Active Substance: ACYCLOVIR
     Route: 065

REACTIONS (2)
  - Thrombocytopenia [Unknown]
  - Herpes zoster [Unknown]
